FAERS Safety Report 4405976-4 (Version None)
Quarter: 2004Q3

REPORT INFORMATION
  Report Type: 
  Country: None (occurrence: None)
  Receive Date: 20040716
  Receipt Date: 20040705
  Transmission Date: 20050211
  Serious: Yes (Death)
  Sender: FDA-Public Use
  Company Number: JP-JNJFOC-20040702333

PATIENT
  Age: 78 Year
  Sex: Male

DRUGS (8)
  1. ITRACONAZOLE [Suspect]
     Indication: PROPHYLAXIS
     Dosage: 100 MG, 1 IN 1 DAY, ORAL
     Route: 048
     Dates: start: 20040422
  2. WARFARIN SODIUM [Concomitant]
  3. REBAMIPIDE 9REBAMIPIDE) [Concomitant]
  4. FLECAINIDE ACETATE [Concomitant]
  5. SODIUM ALGINATE (SOLDIUM ALGINATE) [Concomitant]
  6. MAGNESIUM OXIDE (MAGNESIUM OXIDE [Concomitant]
  7. ZOLPIDEM TARTRATE [Concomitant]
  8. DIGOXIN [Concomitant]

REACTIONS (6)
  - ALANINE AMINOTRANSFERASE INCREASED [None]
  - ASPARTATE AMINOTRANSFERASE INCREASED [None]
  - BLOOD ALKALINE PHOSPHATASE INCREASED [None]
  - GAMMA-GLUTAMYLTRANSFERASE INCREASED [None]
  - HAEMORRHAGE [None]
  - PNEUMONIA ASPIRATION [None]
